FAERS Safety Report 9344523 (Version 1)
Quarter: 2013Q2

REPORT INFORMATION
  Report Type: Spontaneous
  Country: JP (occurrence: JP)
  Receive Date: 20130612
  Receipt Date: 20130612
  Transmission Date: 20140414
  Serious: Yes (Other)
  Sender: FDA-Public Use
  Company Number: JP-JHP PHARMACEUTICALS, LLC-JHP201300359

PATIENT
  Sex: 0

DRUGS (4)
  1. DANTRIUM [Suspect]
     Indication: HYPERTONIA
  2. BACLOFEN [Concomitant]
  3. DIAZEPAM [Concomitant]
  4. ANTIEPILEPTICS [Concomitant]

REACTIONS (2)
  - Drug ineffective for unapproved indication [Recovered/Resolved]
  - Condition aggravated [Recovered/Resolved]
